FAERS Safety Report 5519562-6 (Version None)
Quarter: 2007Q4

REPORT INFORMATION
  Report Type: 
  Country: None (occurrence: None)
  Receive Date: 20071116
  Receipt Date: 20071106
  Transmission Date: 20080405
  Serious: Yes (Hospitalization)
  Sender: FDA-Public Use
  Company Number: US-ELI_LILLY_AND_COMPANY-US200710002040

PATIENT
  Sex: Male
  Weight: 136.5 kg

DRUGS (41)
  1. EXENATIDE [Suspect]
     Indication: DIABETES MELLITUS
     Dosage: 5 UG, 2/D
     Route: 065
     Dates: start: 20050101
  2. EXENATIDE [Suspect]
     Dosage: 10 UG, 2/D
     Route: 058
     Dates: start: 20050101
  3. ENALAPRIL MALEATE [Concomitant]
     Dosage: 20 MG, 2/D
     Route: 065
     Dates: start: 20070221, end: 20070228
  4. ENALAPRIL MALEATE [Concomitant]
     Dosage: 20 MG, EACH MORNING
     Route: 065
     Dates: start: 20070228, end: 20070417
  5. ENALAPRIL MALEATE [Concomitant]
     Dosage: 10 MG, EACH EVENING
     Route: 065
     Dates: start: 20070228, end: 20070417
  6. ENALAPRIL MALEATE [Concomitant]
     Dosage: 10 MG, 2/D
     Route: 065
     Dates: start: 20070417
  7. FUROSEMIDE [Concomitant]
     Dosage: 40 MG, DAILY (1/D)
     Route: 065
  8. REQUIP [Concomitant]
     Dosage: 1.5 MG, DAILY (1/D)
     Route: 065
  9. REQUIP [Concomitant]
     Dosage: 2 MG, DAILY (1/D)
     Route: 065
     Dates: start: 20070221
  10. REQUIP [Concomitant]
     Dosage: 2 MG, EACH EVENING
     Dates: start: 20070714
  11. SIMVASTATIN [Concomitant]
     Dosage: 20 MG, UNKNOWN
     Route: 065
     Dates: start: 20070228
  12. TRICOR [Concomitant]
     Dosage: 160 MG, DAILY (1/D)
     Route: 065
     Dates: end: 20070417
  13. TRICOR [Concomitant]
     Dosage: 145 MG, DAILY (1/D)
     Route: 065
     Dates: start: 20070417
  14. HUMATROPE [Concomitant]
     Dosage: 0.4 MG, DAILY (1/D)
     Route: 065
  15. HUMALOG [Concomitant]
     Indication: DIABETES MELLITUS
     Dosage: UNK, AS NEEDED
  16. METFORMIN HCL [Concomitant]
     Indication: DIABETES MELLITUS
     Dosage: 500 MG, 3/D
     Route: 048
     Dates: end: 20070417
  17. METFORMIN HCL [Concomitant]
     Dosage: 1000 MG, EACH MORNING
     Dates: start: 20070417, end: 20070530
  18. METFORMIN HCL [Concomitant]
     Dosage: 500 MG, EACH EVENING
     Dates: start: 20070417, end: 20070530
  19. METFORMIN HCL [Concomitant]
     Dosage: 1000 MG, 2/D
     Route: 065
     Dates: start: 20070530, end: 20070807
  20. METFORMIN HCL [Concomitant]
     Dosage: 1000 MG, EACH MORNING
     Route: 065
     Dates: start: 20070807
  21. METFORMIN HCL [Concomitant]
     Dosage: 500 MG, EACH EVENING
     Route: 065
     Dates: start: 20070807
  22. LANTUS [Concomitant]
     Indication: DIABETES MELLITUS
     Dosage: 150 MG, DAILY (1/D)
     Route: 058
  23. LANTUS [Concomitant]
     Dosage: 65 U, 2/D
     Route: 065
     Dates: end: 20070417
  24. LANTUS [Concomitant]
     Dosage: 70 U, 2/D
     Route: 065
     Dates: start: 20070417, end: 20070530
  25. LANTUS [Concomitant]
     Dosage: 75 U, 2/D
     Route: 065
     Dates: start: 20070530, end: 20070817
  26. LANTUS [Concomitant]
     Dosage: 80 U, 2/D
     Route: 065
  27. KLOR-CON [Concomitant]
     Dosage: 20 MEQ, DAILY (1/D)
  28. ASPIRIN [Concomitant]
     Dosage: 325 MG, DAILY (1/D)
     Dates: end: 20070417
  29. ASPIRIN [Concomitant]
     Dosage: 81 MG, UNK
     Dates: start: 20070417
  30. HYDROCHLOROTHIAZIDE [Concomitant]
     Dosage: 25 MG, DAILY (1/D)
     Route: 065
     Dates: end: 20070417
  31. RHINOCORT [Concomitant]
     Dosage: UNK, AS NEEDED
     Route: 065
     Dates: end: 20070221
  32. IPRATROPIUM BROMIDE [Concomitant]
     Dosage: 42 UG, AS NEEDED
     Route: 065
     Dates: end: 20070221
  33. AMBIEN [Concomitant]
     Dosage: 12.5 MG, DAILY (1/D)
     Route: 065
  34. CYMBALTA [Concomitant]
     Indication: DEPRESSION
     Dosage: 60 MG, EACH MORNING
  35. ADVAIR DISKUS 100/50 [Concomitant]
     Dosage: UNK, 2/D
     Route: 055
  36. RAZADYNE ER [Concomitant]
     Dosage: 16 MG, DAILY (1/D)
     Dates: end: 20070417
  37. M.V.I. [Concomitant]
     Dosage: UNK, DAILY (1/D)
     Route: 065
  38. CHROMIUM PICOLINATE [Concomitant]
  39. NAMENDA [Concomitant]
     Dosage: 10 MG, 2/D
     Dates: end: 20070417
  40. VITAMIN B COMPLEX CAP [Concomitant]
     Dosage: UNK, DAILY (1/D)
  41. CALCIUM-MAGNSEIUM WITH ZINC [Concomitant]
     Dosage: UNK, DAILY (1/D)

REACTIONS (11)
  - AMNESIA [None]
  - BLOOD GLUCOSE ABNORMAL [None]
  - CEREBROVASCULAR ACCIDENT [None]
  - DIZZINESS [None]
  - FALL [None]
  - INTERVERTEBRAL DISC PROTRUSION [None]
  - LOSS OF CONSCIOUSNESS [None]
  - NAUSEA [None]
  - STAPHYLOCOCCAL INFECTION [None]
  - VERTIGO [None]
  - VOMITING [None]
